FAERS Safety Report 10047050 (Version 1)
Quarter: 2014Q1

REPORT INFORMATION
  Report Type: Spontaneous
  Country: US (occurrence: US)
  Receive Date: 20140331
  Receipt Date: 20140331
  Transmission Date: 20141002
  Serious: No
  Sender: FDA-Public Use
  Company Number: US-MYLANLABS-2013S1003497

PATIENT
  Age: 42 Year
  Sex: Female
  Weight: 88.45 kg

DRUGS (9)
  1. FENTANYL TRANSDERMAL SYSTEM [Suspect]
     Indication: PAIN
     Dosage: Q72HR
     Route: 062
     Dates: start: 2012
  2. DIAZEPAM [Concomitant]
     Indication: INSOMNIA
  3. XANAX [Concomitant]
     Indication: ANXIETY
  4. LYRICA [Concomitant]
     Indication: FIBROMYALGIA
  5. TOPAMAX [Concomitant]
     Indication: MIGRAINE
  6. EFFEXOR [Concomitant]
     Indication: DEPRESSION
  7. SAVELLA [Concomitant]
  8. CONCERTA [Concomitant]
  9. HYDROCODONE [Concomitant]
     Indication: PAIN
     Route: 048

REACTIONS (7)
  - Drug effect decreased [Not Recovered/Not Resolved]
  - Pain [Not Recovered/Not Resolved]
  - Application site erosion [Not Recovered/Not Resolved]
  - Application site rash [Recovered/Resolved]
  - Rash [Recovered/Resolved]
  - Application site odour [Not Recovered/Not Resolved]
  - Diarrhoea [Recovered/Resolved]
